FAERS Safety Report 18213994 (Version 1)
Quarter: 2020Q3

REPORT INFORMATION
  Report Type: Report from Study
  Country: CR (occurrence: CR)
  Receive Date: 20200831
  Receipt Date: 20200831
  Transmission Date: 20201103
  Serious: Yes (Other)
  Sender: FDA-Public Use
  Company Number: NVSC2020CR223191

PATIENT
  Sex: Female

DRUGS (1)
  1. VYMADA [Suspect]
     Active Substance: SACUBITRIL\VALSARTAN
     Indication: PRODUCT USED FOR UNKNOWN INDICATION
     Dosage: 1 DF, QD (1 OF 50 MG)
     Route: 065

REACTIONS (5)
  - Choking [Unknown]
  - Incorrect dose administered [Unknown]
  - Product prescribing error [Unknown]
  - Blood glucose abnormal [Unknown]
  - Malaise [Unknown]
